FAERS Safety Report 25647974 (Version 2)
Quarter: 2025Q4

REPORT INFORMATION
  Report Type: Spontaneous
  Country: GB (occurrence: GB)
  Receive Date: 20250806
  Receipt Date: 20251006
  Transmission Date: 20260118
  Serious: Yes (Other)
  Sender: REGENERON
  Company Number: GB-SA-2025SA166581

PATIENT
  Age: 65 Year
  Sex: Female

DRUGS (2)
  1. PRALUENT [Suspect]
     Active Substance: ALIROCUMAB
     Indication: Type IIa hyperlipidaemia
     Dosage: 150 MG, QOW, SOLUTION FOR INJECTION
     Route: 058
     Dates: start: 20250523, end: 20250620
  2. ASPIRIN [Concomitant]
     Active Substance: ASPIRIN
     Indication: Angina pectoris
     Dosage: 75 MG, QD
     Dates: start: 202401

REACTIONS (6)
  - Deafness [Not Recovered/Not Resolved]
  - Ear pain [Recovering/Resolving]
  - Eustachian tube obstruction [Recovered/Resolved]
  - Ear discomfort [Not Recovered/Not Resolved]
  - Ear infection [Unknown]
  - Myalgia [Recovered/Resolved]

NARRATIVE: CASE EVENT DATE: 20250530
